FAERS Safety Report 10225749 (Version 1)
Quarter: 2014Q2

REPORT INFORMATION
  Report Type: Spontaneous
  Country: US (occurrence: US)
  Receive Date: 20140609
  Receipt Date: 20140609
  Transmission Date: 20141212
  Serious: Yes (Hospitalization)
  Sender: FDA-Public Use
  Company Number: US-ASTELLAS-2013US007374

PATIENT
  Age: 68 Year
  Sex: Male

DRUGS (2)
  1. PROGRAF [Suspect]
     Indication: HEART TRANSPLANT
     Dosage: 3MG AM  + 3MG PM,
     Route: 048
     Dates: start: 20040415, end: 20130601
  2. PROGRAF [Suspect]
     Indication: TYPE 2 DIABETES MELLITUS

REACTIONS (2)
  - Off label use [Unknown]
  - Neoplasm malignant [Unknown]
